FAERS Safety Report 12545635 (Version 1)
Quarter: 2016Q3

REPORT INFORMATION
  Report Type: Spontaneous
  Country: US (occurrence: US)
  Receive Date: 20160711
  Receipt Date: 20160711
  Transmission Date: 20161109
  Serious: No
  Sender: FDA-Public Use
  Company Number: US-DSJP-DSU-2016-111533

PATIENT
  Age: 40 Year
  Sex: Male
  Weight: 118 kg

DRUGS (3)
  1. BENICAR HCT [Suspect]
     Active Substance: HYDROCHLOROTHIAZIDE\OLMESARTAN MEDOXOMIL
     Dosage: UNK
  2. BENICAR HCT [Suspect]
     Active Substance: HYDROCHLOROTHIAZIDE\OLMESARTAN MEDOXOMIL
     Indication: HYPERTENSION
     Dosage: 40MG/12.5MG , QD
     Route: 048
     Dates: start: 201107, end: 20140818
  3. EXCEDRIN [Concomitant]
     Active Substance: ACETAMINOPHEN\ASPIRIN\CAFFEINE
     Indication: MIGRAINE
     Dosage: 3 OR 4

REACTIONS (6)
  - Haematochezia [Not Recovered/Not Resolved]
  - Anal fissure [Unknown]
  - Haemorrhoids [Not Recovered/Not Resolved]
  - Gastroenteritis viral [Unknown]
  - Malabsorption [Recovering/Resolving]
  - Constipation [Recovering/Resolving]

NARRATIVE: CASE EVENT DATE: 2012
